FAERS Safety Report 5506189-5 (Version None)
Quarter: 2007Q4

REPORT INFORMATION
  Report Type: 
  Country: None (occurrence: None)
  Receive Date: 20071102
  Receipt Date: 20071102
  Transmission Date: 20080405
  Serious: Yes (Hospitalization)
  Sender: FDA-Public Use
  Company Number: None

PATIENT
  Sex: Male
  Weight: 100.9 kg

DRUGS (14)
  1. TAXOTERE [Suspect]
     Indication: NEOPLASM MALIGNANT
     Dosage: 150MG IV
     Route: 042
     Dates: start: 20070823
  2. CISPLATIN [Suspect]
     Indication: NEOPLASM MALIGNANT
     Dosage: 150MG IV
     Route: 042
     Dates: start: 20070823
  3. FLUOROURACIL [Suspect]
     Indication: NEOPLASM MALIGNANT
     Dosage: 1500MG BID IV QD
     Route: 042
     Dates: start: 20070823, end: 20070827
  4. AMBIEN [Concomitant]
  5. ASPIRIN [Concomitant]
  6. ATIVAN [Concomitant]
  7. COMPAZINE [Concomitant]
  8. HYZAAR [Concomitant]
  9. LIDEX [Concomitant]
  10. LIPITOR [Concomitant]
  11. LOPROX [Concomitant]
  12. NASONEX [Concomitant]
  13. SINGULAIR [Concomitant]
  14. ZOFRAN [Concomitant]

REACTIONS (1)
  - CLOSTRIDIUM DIFFICILE COLITIS [None]
